FAERS Safety Report 4891966-4 (Version None)
Quarter: 2006Q1

REPORT INFORMATION
  Report Type: 
  Country: None (occurrence: None)
  Receive Date: 20060124
  Receipt Date: 20060124
  Transmission Date: 20060701
  Serious: No
  Sender: FDA-Public Use
  Company Number: None

PATIENT
  Age: 30 Year
  Sex: Female
  Weight: 86.9999 kg

DRUGS (2)
  1. PROFEN FORTE [Suspect]
     Indication: ANAEMIA PROPHYLAXIS
     Dosage: DM BID PO
     Route: 048
     Dates: start: 20050829, end: 20051229
  2. PROFEN FORTE [Suspect]
     Indication: MULTIPLE PREGNANCY
     Dosage: DM BID PO
     Route: 048
     Dates: start: 20050829, end: 20051229

REACTIONS (5)
  - DRUG DISPENSING ERROR [None]
  - DRUG EXPOSURE DURING PREGNANCY [None]
  - MEDICATION ERROR [None]
  - PREMATURE LABOUR [None]
  - WRONG DRUG ADMINISTERED [None]
